FAERS Safety Report 18029345 (Version 1)
Quarter: 2020Q3

REPORT INFORMATION
  Report Type: Spontaneous
  Country: US (occurrence: US)
  Receive Date: 20200714
  Receipt Date: 20200714
  Transmission Date: 20201103
  Serious: Yes (Hospitalization)
  Sender: FDA-Public Use
  Company Number: None

PATIENT
  Age: 60 Year
  Sex: Male
  Weight: 78 kg

DRUGS (1)
  1. OSIMERTINIB (OSIMERTINIB 80MG TAB) [Suspect]
     Active Substance: OSIMERTINIB
     Indication: PNEUMONITIS
     Dates: start: 20191227, end: 20200206

REACTIONS (4)
  - Acute respiratory failure [None]
  - Pneumonia [None]
  - Acute respiratory distress syndrome [None]
  - Pneumonitis [None]

NARRATIVE: CASE EVENT DATE: 20200206
